FAERS Safety Report 7808283-2 (Version None)
Quarter: 2011Q4

REPORT INFORMATION
  Report Type: 
  Country: None (occurrence: None)
  Receive Date: 20111012
  Receipt Date: 20111003
  Transmission Date: 20120403
  Serious: Yes (Hospitalization)
  Sender: FDA-Public Use
  Company Number: US-BIOGENIDEC-2011BI035693

PATIENT
  Age: 57 Year
  Sex: Female

DRUGS (6)
  1. AVONEX [Suspect]
     Indication: MULTIPLE SCLEROSIS
     Route: 030
     Dates: start: 20110801, end: 20110903
  2. AMPYRA [Concomitant]
     Indication: GAIT DISTURBANCE
     Dates: start: 20100601
  3. SOLU-MEDROL [Concomitant]
     Indication: PRODUCT USED FOR UNKNOWN INDICATION
  4. AVONEX [Suspect]
     Route: 030
  5. AVONEX [Suspect]
     Route: 030
     Dates: start: 20020701, end: 20030801
  6. AVONEX [Suspect]
     Route: 030
     Dates: start: 20030801, end: 20081001

REACTIONS (8)
  - ASTHENIA [None]
  - JOINT SWELLING [None]
  - SCRATCH [None]
  - INFECTION [None]
  - INFLUENZA LIKE ILLNESS [None]
  - FALL [None]
  - LOSS OF CONTROL OF LEGS [None]
  - CONTUSION [None]
